FAERS Safety Report 7100280-8 (Version None)
Quarter: 2010Q4

REPORT INFORMATION
  Report Type: 
  Country: None (occurrence: None)
  Receive Date: 20101112
  Receipt Date: 20101108
  Transmission Date: 20110411
  Serious: Yes (Life-Threatening, Hospitalization, Other)
  Sender: FDA-Public Use
  Company Number: PHHY2010US75118

PATIENT
  Age: 80 Year
  Sex: Female

DRUGS (7)
  1. RECLAST [Suspect]
     Indication: OSTEOPOROSIS POSTMENOPAUSAL
     Dosage: 5 MG
     Route: 042
     Dates: start: 20080901, end: 20101001
  2. RECLAST [Suspect]
     Dosage: 5 MG, ONCE PER YEAR
     Route: 042
     Dates: start: 20101004
  3. CELEBREX [Suspect]
     Indication: OSTEOARTHRITIS
     Dosage: 200 MG, QD
     Dates: start: 20030701, end: 20101001
  4. COUMADIN [Concomitant]
     Indication: ARTERIAL FIBROSIS
     Dosage: UNK
     Route: 048
     Dates: start: 20030101
  5. LEXAPRO [Concomitant]
     Indication: DEPRESSION
     Dosage: UNK
     Dates: start: 20070101
  6. SOTALOL [Concomitant]
     Indication: ARTERIAL FIBROSIS
     Dosage: UNK
     Dates: start: 20090101
  7. CRESTOR [Concomitant]
     Indication: HYPERTENSION
     Dosage: UNK
     Dates: start: 20090101

REACTIONS (6)
  - ASTHENIA [None]
  - FATIGUE [None]
  - GLOMERULAR FILTRATION RATE DECREASED [None]
  - LETHARGY [None]
  - RASH [None]
  - RENAL FAILURE ACUTE [None]
